FAERS Safety Report 15976325 (Version 1)
Quarter: 2019Q1

REPORT INFORMATION
  Report Type: Spontaneous
  Country: US (occurrence: US)
  Receive Date: 20190218
  Receipt Date: 20190218
  Transmission Date: 20190418
  Serious: No
  Sender: FDA-Public Use
  Company Number: US-PFIZER INC-2019071370

PATIENT
  Age: 89 Year
  Sex: Female

DRUGS (4)
  1. MORPHINE SULFATE. [Suspect]
     Active Substance: MORPHINE SULFATE
     Dosage: UNK
  2. CODEINE [Suspect]
     Active Substance: CODEINE
     Dosage: UNK
  3. ERYTHROMYCIN BASE [Suspect]
     Active Substance: ERYTHROMYCIN
     Dosage: UNK
  4. DARVON [BETAHISTINE MESILATE] [Suspect]
     Active Substance: BETAHISTINE MESILATE
     Dosage: UNK

REACTIONS (1)
  - Drug hypersensitivity [Unknown]
